FAERS Safety Report 8212599-8 (Version None)
Quarter: 2012Q1

REPORT INFORMATION
  Report Type: 
  Country: None (occurrence: None)
  Receive Date: 20120315
  Receipt Date: 20120313
  Transmission Date: 20120608
  Serious: Yes (Hospitalization)
  Sender: FDA-Public Use
  Company Number: US-BAYER-2012-019889

PATIENT
  Age: 52 Year
  Sex: Female

DRUGS (2)
  1. BETASERON [Suspect]
     Dosage: 6 MIU, QOD
     Route: 058
  2. BETASERON [Suspect]
     Indication: RELAPSING-REMITTING MULTIPLE SCLEROSIS
     Dosage: 4 MIU, QOD
     Route: 058
     Dates: start: 20120210

REACTIONS (5)
  - VOMITING [None]
  - WHITE BLOOD CELL COUNT INCREASED [None]
  - DYSPEPSIA [None]
  - ABDOMINAL PAIN UPPER [None]
  - NAUSEA [None]
